FAERS Safety Report 16462879 (Version 4)
Quarter: 2020Q4

REPORT INFORMATION
  Report Type: Spontaneous
  Country: JP (occurrence: JP)
  Receive Date: 20190621
  Receipt Date: 20201007
  Transmission Date: 20210113
  Serious: Yes (Death, Life-Threatening, Hospitalization, Other)
  Sender: FDA-Public Use
  Company Number: JP-009507513-1906JPN001522J

PATIENT
  Age: 67 Year
  Sex: Male
  Weight: 57 kg

DRUGS (4)
  1. CARBOPLATIN. [Concomitant]
     Active Substance: CARBOPLATIN
     Indication: LUNG ADENOCARCINOMA STAGE III
     Dosage: UNK
     Route: 041
     Dates: start: 20190117
  2. LIXIANA [Concomitant]
     Active Substance: EDOXABAN TOSYLATE
     Indication: THROMBOPHLEBITIS MIGRANS
     Dosage: 60 MILLIGRAM, QD
     Route: 048
     Dates: start: 20190131
  3. PEMETREXED DISODIUM [Concomitant]
     Active Substance: PEMETREXED DISODIUM
     Indication: LUNG ADENOCARCINOMA STAGE III
     Dosage: UNK
     Route: 041
     Dates: start: 20190117
  4. KEYTRUDA [Suspect]
     Active Substance: PEMBROLIZUMAB
     Indication: LUNG ADENOCARCINOMA STAGE III
     Dosage: 200 MILLIGRAM, Q3W
     Route: 041
     Dates: start: 20190117, end: 20190308

REACTIONS (5)
  - Acute respiratory distress syndrome [Fatal]
  - Pneumonia aspiration [Fatal]
  - Septic shock [Fatal]
  - Myasthenia gravis [Fatal]
  - Encephalitis [Fatal]

NARRATIVE: CASE EVENT DATE: 20190401
